FAERS Safety Report 19008539 (Version 1)
Quarter: 2021Q1

REPORT INFORMATION
  Report Type: Spontaneous
  Country: PT (occurrence: PT)
  Receive Date: 20210315
  Receipt Date: 20210315
  Transmission Date: 20210420
  Serious: Yes (Other)
  Sender: FDA-Public Use
  Company Number: PT-GLAXOSMITHKLINE-PT2021GSK059496

PATIENT
  Age: 89 Year
  Sex: Female

DRUGS (1)
  1. ROPINIROLE. [Suspect]
     Active Substance: ROPINIROLE
     Indication: RESTLESS LEGS SYNDROME
     Dosage: 16 MG, BID

REACTIONS (3)
  - Intentional overdose [Unknown]
  - Hallucination, visual [Unknown]
  - Treatment noncompliance [Unknown]
